FAERS Safety Report 6694583-9 (Version None)
Quarter: 2010Q2

REPORT INFORMATION
  Report Type: 
  Country: None (occurrence: None)
  Receive Date: 20100423
  Receipt Date: 20100415
  Transmission Date: 20101027
  Serious: Yes (Life-Threatening, Disabling, Congenital Anomaly)
  Sender: FDA-Public Use
  Company Number: NO-TEVA-231524ISR

PATIENT
  Sex: Male

DRUGS (5)
  1. PRAMIPEXOLE DIHYDROCHLORIDE [Suspect]
     Indication: MIGRAINE PROPHYLAXIS
     Route: 064
  2. CANDESARTAN CILEXETIL [Suspect]
     Indication: MIGRAINE PROPHYLAXIS
     Route: 064
  3. AMITRIPTYLINE [Suspect]
     Indication: MIGRAINE PROPHYLAXIS
     Route: 064
  4. METOCLOPRAMIDE HYDROCHLORIDE [Concomitant]
     Indication: MIGRAINE
     Route: 064
  5. ZOLMITRIPTAN [Concomitant]
     Indication: MIGRAINE
     Route: 064

REACTIONS (3)
  - PULMONARY MALFORMATION [None]
  - RENAL APLASIA [None]
  - SKULL MALFORMATION [None]
